FAERS Safety Report 6960710-9 (Version None)
Quarter: 2010Q3

REPORT INFORMATION
  Report Type: 
  Country: None (occurrence: None)
  Receive Date: 20100901
  Receipt Date: 20100826
  Transmission Date: 20110219
  Serious: Yes (Life-Threatening, Hospitalization)
  Sender: FDA-Public Use
  Company Number: GR-ROCHE-703404

PATIENT
  Age: 48 Year
  Sex: Male
  Weight: 62 kg

DRUGS (2)
  1. PEGASYS [Suspect]
     Route: 058
     Dates: start: 20090313, end: 20090806
  2. COPEGUS [Suspect]
     Route: 048
     Dates: start: 20090313, end: 20090806

REACTIONS (2)
  - ALLERGIC GRANULOMATOUS ANGIITIS [None]
  - INFECTION [None]
